FAERS Safety Report 6368864-2 (Version None)
Quarter: 2009Q3

REPORT INFORMATION
  Report Type: 
  Country: None (occurrence: None)
  Receive Date: 20090922
  Receipt Date: 20090917
  Transmission Date: 20100115
  Serious: Yes (Other)
  Sender: FDA-Public Use
  Company Number: JP-JNJFOC-20090503523

PATIENT
  Age: 82 Year
  Sex: Male

DRUGS (2)
  1. DUROTEP [Suspect]
     Indication: CANCER PAIN
     Route: 062
  2. UNKNOWN MEDICATION [Concomitant]

REACTIONS (1)
  - DELIRIUM [None]
